FAERS Safety Report 6178064-7 (Version None)
Quarter: 2009Q2

REPORT INFORMATION
  Report Type: 
  Country: None (occurrence: None)
  Receive Date: 20090504
  Receipt Date: 20090129
  Transmission Date: 20091009
  Serious: No
  Sender: FDA-Public Use
  Company Number: US-ALEXION-A200900082

PATIENT
  Sex: Female
  Weight: 61.497 kg

DRUGS (9)
  1. SOLIRIS [Suspect]
     Indication: PAROXYSMAL NOCTURNAL HAEMOGLOBINURIA
     Dosage: 600 MG, QW
     Route: 042
     Dates: start: 20070904
  2. SOLIRIS [Suspect]
     Dosage: 900 MG, Q2W
     Route: 042
  3. DANAZOL [Concomitant]
     Dosage: 50 MG, QOD
     Route: 048
     Dates: start: 20080625
  4. DANAZOL [Concomitant]
     Dosage: 100 MG, QOD
     Route: 048
     Dates: start: 20080625
  5. PREDNISONE [Concomitant]
     Dosage: 7.5 MG, QD
     Route: 048
  6. PREDNISONE [Concomitant]
     Dosage: 5 MG, QD
     Route: 048
     Dates: start: 20090204
  7. FOLATE [Concomitant]
     Dosage: 1 MG, QD
     Route: 048
  8. IRON SULFATETHIAMIN COMPOUND TAB [Concomitant]
     Dosage: 325-650 MG, QD
     Route: 048
  9. COUMADIN [Concomitant]
     Indication: PROPHYLAXIS
     Dosage: 1 MG, QD
     Route: 048

REACTIONS (5)
  - BRONCHITIS [None]
  - COSTOVERTEBRAL ANGLE TENDERNESS [None]
  - EAR PAIN [None]
  - NASOPHARYNGITIS [None]
  - NEUTROPENIA [None]
